FAERS Safety Report 10077420 (Version 1)
Quarter: 2014Q2

REPORT INFORMATION
  Report Type: Spontaneous
  Country: US (occurrence: US)
  Receive Date: 20140414
  Receipt Date: 20140414
  Transmission Date: 20141212
  Serious: No
  Sender: FDA-Public Use
  Company Number: US-BANPHARM-20131495

PATIENT
  Age: 56 Year
  Sex: Female
  Weight: 84.81 kg

DRUGS (6)
  1. NAPROXEN SODIUM 220 MG [Suspect]
     Indication: ARTHRALGIA
     Dosage: 220 MG, BID,
     Route: 048
     Dates: start: 20130707, end: 20130707
  2. NAPROXEN SODIUM 220 MG [Suspect]
     Indication: ARTHRALGIA
     Dosage: 220 MG, QD,
     Route: 048
     Dates: start: 20130708, end: 20130710
  3. RESTLESS LEG SYNDROME MEDICATION [Concomitant]
  4. THYROID THERAPY [Concomitant]
  5. POTASSIUM [Concomitant]
  6. DIURETICS [Concomitant]

REACTIONS (1)
  - Nausea [Recovered/Resolved]
